FAERS Safety Report 12293385 (Version 2)
Quarter: 2016Q2

REPORT INFORMATION
  Report Type: Report from Study
  Country: HT (occurrence: HT)
  Receive Date: 20160421
  Receipt Date: 20160426
  Transmission Date: 20160815
  Serious: Yes (Death, Hospitalization)
  Sender: FDA-Public Use
  Company Number: HT-ABBVIE-16P-073-1598903-00

PATIENT
  Age: 45 Year
  Sex: Female

DRUGS (4)
  1. RIFABUTIN. [Concomitant]
     Active Substance: RIFABUTIN
     Indication: TUBERCULOSIS
     Dosage: Q AM
     Route: 048
     Dates: start: 20151030, end: 20160327
  2. KALETRA [Suspect]
     Active Substance: LOPINAVIR\RITONAVIR
     Indication: HIV INFECTION
     Route: 048
     Dates: start: 20151105, end: 20160328
  3. LAMIVUDINE W/TENOFOVIR DISOPROXIL [Concomitant]
     Active Substance: LAMIVUDINE\TENOFOVIR DISOPROXIL FUMARATE
     Indication: HIV INFECTION
     Route: 048
     Dates: end: 20160327
  4. ISONIAZID. [Concomitant]
     Active Substance: ISONIAZID
     Indication: TUBERCULOSIS
     Route: 048
     Dates: end: 20160327

REACTIONS (3)
  - Respiratory distress [Fatal]
  - Sepsis [Fatal]
  - Cerebral calcification [Fatal]

NARRATIVE: CASE EVENT DATE: 20160104
